FAERS Safety Report 23769601 (Version 1)
Quarter: 2024Q2

REPORT INFORMATION
  Report Type: Spontaneous
  Country: US (occurrence: None)
  Receive Date: 20240421
  Receipt Date: 20240421
  Transmission Date: 20240715
  Serious: Yes (Life-Threatening, Hospitalization)
  Sender: FDA-Public Use
  Company Number: None

PATIENT
  Age: 62 Year
  Sex: Male

DRUGS (1)
  1. COAGULATION FACTOR VIIA RECOMBINANT HUMAN [Suspect]
     Active Substance: COAGULATION FACTOR VIIA RECOMBINANT HUMAN
     Indication: Haemorrhage
     Dosage: 7 MG TID IV?
     Route: 042
     Dates: start: 20230823, end: 20230828

REACTIONS (4)
  - Gastrointestinal haemorrhage [None]
  - Incorrect dose administered [None]
  - Haemoglobin decreased [None]
  - Product dispensing issue [None]

NARRATIVE: CASE EVENT DATE: 20230828
